FAERS Safety Report 5134678-4 (Version None)
Quarter: 2006Q4

REPORT INFORMATION
  Report Type: 
  Country: None (occurrence: None)
  Receive Date: 20061025
  Receipt Date: 20060907
  Transmission Date: 20070319
  Serious: Yes (Death)
  Sender: FDA-Public Use
  Company Number: 2006AP04170

PATIENT
  Age: 21621 Day
  Sex: Male

DRUGS (11)
  1. IRESSA [Suspect]
     Indication: LUNG ADENOCARCINOMA RECURRENT
     Route: 048
     Dates: start: 20060731, end: 20060830
  2. IRESSA [Suspect]
     Indication: NON-SMALL CELL LUNG CANCER STAGE IV
     Route: 048
     Dates: start: 20060731, end: 20060830
  3. PAXIL [Suspect]
     Indication: ANXIETY DISORDER
     Route: 048
     Dates: start: 20060803, end: 20060830
  4. PARIET [Suspect]
     Indication: REFLUX OESOPHAGITIS
     Route: 048
     Dates: start: 20060803, end: 20060830
  5. DEPAS [Concomitant]
     Indication: ANXIETY DISORDER
     Route: 048
     Dates: start: 20060301, end: 20060830
  6. ZOLPIDEM TARTRATE [Concomitant]
     Indication: INSOMNIA
     Route: 048
     Dates: start: 20060301, end: 20060830
  7. LENDORMIN [Concomitant]
     Indication: INSOMNIA
     Route: 048
     Dates: start: 20060306, end: 20060830
  8. VOLTAREN [Concomitant]
     Indication: CANCER PAIN
     Route: 048
     Dates: start: 20060323, end: 20060830
  9. UNIPHYL [Concomitant]
     Indication: LUNG ADENOCARCINOMA RECURRENT
     Route: 048
     Dates: start: 20060413, end: 20060830
  10. GEMZAR [Concomitant]
     Dates: start: 20060215, end: 20060403
  11. DOCETAXEL HYDRATE [Concomitant]
     Dates: start: 20060420, end: 20060714

REACTIONS (4)
  - ACUTE RESPIRATORY DISTRESS SYNDROME [None]
  - ANXIETY DISORDER [None]
  - LUNG CONSOLIDATION [None]
  - REFLUX OESOPHAGITIS [None]
